FAERS Safety Report 8454970-5 (Version None)
Quarter: 2012Q2

REPORT INFORMATION
  Report Type: 
  Country: None (occurrence: None)
  Receive Date: 20120621
  Receipt Date: 20120618
  Transmission Date: 20120825
  Serious: No
  Sender: FDA-Public Use
  Company Number: US-PFIZER INC-2012147481

PATIENT

DRUGS (1)
  1. PRISTIQ [Suspect]

REACTIONS (1)
  - INSOMNIA [None]
